FAERS Safety Report 9012654 (Version 3)
Quarter: 2013Q1

REPORT INFORMATION
  Report Type: Spontaneous
  Country: JP (occurrence: JP)
  Receive Date: 20130114
  Receipt Date: 20130213
  Transmission Date: 20140127
  Serious: Yes (Other)
  Sender: FDA-Public Use
  Company Number: PHHY2013JP002260

PATIENT
  Sex: Male

DRUGS (2)
  1. CICLOSPORIN [Suspect]
     Indication: BEHCET^S SYNDROME
     Route: 048
  2. COLCHICINE [Concomitant]
     Route: 048

REACTIONS (2)
  - Azoospermia [Unknown]
  - Malaise [Unknown]
